FAERS Safety Report 14609881 (Version 1)
Quarter: 2018Q1

REPORT INFORMATION
  Report Type: Spontaneous
  Country: US (occurrence: US)
  Receive Date: 20180307
  Receipt Date: 20180307
  Transmission Date: 20180509
  Serious: No
  Sender: FDA-Public Use
  Company Number: None

PATIENT
  Sex: Female

DRUGS (7)
  1. PRAVASTATIN. [Suspect]
     Active Substance: PRAVASTATIN
  2. PRAVACHOL [Concomitant]
     Active Substance: PRAVASTATIN SODIUM
  3. WELCHOL [Concomitant]
     Active Substance: COLESEVELAM HYDROCHLORIDE
  4. ZEDIA [Concomitant]
  5. ZOCOR [Suspect]
     Active Substance: SIMVASTATIN
  6. LIPITOR [Concomitant]
     Active Substance: ATORVASTATIN CALCIUM
  7. LESCOL [Concomitant]
     Active Substance: FLUVASTATIN SODIUM

REACTIONS (3)
  - Myalgia [None]
  - Malaise [None]
  - Arthralgia [None]
